FAERS Safety Report 18775741 (Version 1)
Quarter: 2021Q1

REPORT INFORMATION
  Report Type: Report from Study
  Country: US (occurrence: US)
  Receive Date: 20210122
  Receipt Date: 20210122
  Transmission Date: 20210419
  Serious: Yes (Life-Threatening, Hospitalization, Disabling)
  Sender: FDA-Public Use
  Company Number: US-EMD SERONO-E2B_90054919

PATIENT
  Age: 56 Year
  Sex: Male

DRUGS (3)
  1. REBIF [Suspect]
     Active Substance: INTERFERON BETA-1A
     Route: 058
     Dates: start: 20170221, end: 20190826
  2. REBIF [Suspect]
     Active Substance: INTERFERON BETA-1A
     Route: 058
     Dates: start: 20191213
  3. REBIF [Suspect]
     Active Substance: INTERFERON BETA-1A
     Indication: RELAPSING-REMITTING MULTIPLE SCLEROSIS
     Route: 058
     Dates: start: 20070417, end: 20170118

REACTIONS (22)
  - Vocal cord disorder [Unknown]
  - Contusion [Unknown]
  - Injection site haemorrhage [Unknown]
  - Wound complication [Not Recovered/Not Resolved]
  - Dyskinesia [Unknown]
  - Myocardial infarction [Unknown]
  - Loss of consciousness [Unknown]
  - Carotid endarterectomy [Unknown]
  - Pleural effusion [Unknown]
  - Procedural complication [Unknown]
  - Bedridden [Not Recovered/Not Resolved]
  - Decubitus ulcer [Unknown]
  - Wound secretion [Unknown]
  - Wound haemorrhage [Unknown]
  - Cerebrovascular accident [Recovering/Resolving]
  - Buttock injury [Not Recovered/Not Resolved]
  - Back pain [Unknown]
  - Pneumonia [Unknown]
  - Influenza [Unknown]
  - Fall [Unknown]
  - Urinary tract infection [Unknown]
  - Eye movement disorder [Unknown]

NARRATIVE: CASE EVENT DATE: 2017
